FAERS Safety Report 19562902 (Version 1)
Quarter: 2021Q3

REPORT INFORMATION
  Report Type: Report from Study
  Country: US (occurrence: US)
  Receive Date: 20210715
  Receipt Date: 20210715
  Transmission Date: 20211014
  Serious: Yes (Hospitalization)
  Sender: FDA-Public Use
  Company Number: US-BRISTOL-MYERS SQUIBB COMPANY-BMS-2021-067422

PATIENT
  Age: 77 Year
  Sex: Female
  Weight: 70.7 kg

DRUGS (3)
  1. NINTEDANIB [Suspect]
     Active Substance: NINTEDANIB
     Indication: NON-SMALL CELL LUNG CANCER
     Dosage: 8 DOSES
     Route: 065
     Dates: start: 20210701, end: 20210708
  2. IPILIMUMAB [Suspect]
     Active Substance: IPILIMUMAB
     Indication: NON-SMALL CELL LUNG CANCER
     Dosage: UNK
     Route: 065
     Dates: start: 20210701, end: 20210701
  3. NIVOLUMAB [Suspect]
     Active Substance: NIVOLUMAB
     Indication: NON-SMALL CELL LUNG CANCER
     Dosage: UNK
     Route: 065
     Dates: start: 20210701, end: 20210701

REACTIONS (1)
  - Pleural effusion [Unknown]

NARRATIVE: CASE EVENT DATE: 20210708
